FAERS Safety Report 9157239 (Version 1)
Quarter: 2013Q1

REPORT INFORMATION
  Report Type: Spontaneous
  Country: US (occurrence: None)
  Receive Date: 20130312
  Receipt Date: 20130312
  Transmission Date: 20140127
  Serious: No
  Sender: FDA-Public Use
  Company Number: None

PATIENT
  Age: 66 Year
  Sex: Female
  Weight: 76.2 kg

DRUGS (2)
  1. METHYLPREDNISOLONE ACETATE [Suspect]
     Indication: RADICULAR PAIN
     Dosage: 80MG PRN  EPIDURAL
     Route: 008
     Dates: start: 20120717, end: 20120717
  2. METHYLPREDNISOLONE ACETATE [Suspect]
     Indication: SPONDYLOLISTHESIS
     Dosage: 80MG PRN  EPIDURAL
     Route: 008
     Dates: start: 20120717, end: 20120717

REACTIONS (7)
  - Back pain [None]
  - Musculoskeletal stiffness [None]
  - Headache [None]
  - Photophobia [None]
  - Product contamination [None]
  - Cerebrospinal fluid leakage [None]
  - Post procedural complication [None]
